FAERS Safety Report 16652757 (Version 6)
Quarter: 2020Q1

REPORT INFORMATION
  Report Type: Report from Study
  Country: CA (occurrence: CA)
  Receive Date: 20190731
  Receipt Date: 20200318
  Transmission Date: 20200409
  Serious: Yes (Hospitalization)
  Sender: FDA-Public Use
  Company Number: CA-JNJFOC-20190408488

PATIENT
  Age: 75 Year
  Sex: Male
  Weight: 84.1 kg

DRUGS (1)
  1. REMICADE [Suspect]
     Active Substance: INFLIXIMAB
     Indication: CROHN^S DISEASE
     Route: 042
     Dates: start: 20140123

REACTIONS (2)
  - Skin lesion [Recovered/Resolved]
  - Tonsil cancer [Recovering/Resolving]

NARRATIVE: CASE EVENT DATE: 20190401
